FAERS Safety Report 16744644 (Version 1)
Quarter: 2019Q3

REPORT INFORMATION
  Report Type: Spontaneous
  Country: ES (occurrence: ES)
  Receive Date: 20190827
  Receipt Date: 20190827
  Transmission Date: 20191005
  Serious: Yes (Other)
  Sender: FDA-Public Use
  Company Number: ES-MYLANLABS-2019M1078552

PATIENT
  Age: 58 Year
  Sex: Female

DRUGS (5)
  1. MORFINA SULFATO [Interacting]
     Active Substance: MORPHINE SULFATE
     Indication: POSTOPERATIVE ANALGESIA
     Dosage: 8 MILLIGRAM, QD
     Route: 058
     Dates: start: 20181123, end: 20181125
  2. TRAMADOL. [Suspect]
     Active Substance: TRAMADOL
     Indication: POSTOPERATIVE ANALGESIA
     Dosage: 50 MILLIGRAM, QD
     Route: 042
     Dates: start: 20181122, end: 20181128
  3. DIAZEPAM. [Concomitant]
     Active Substance: DIAZEPAM
     Dosage: 5 MILLIGRAM, QD
     Route: 060
     Dates: start: 20181122
  4. PARACETAMOL [Concomitant]
     Active Substance: ACETAMINOPHEN
     Indication: POSTOPERATIVE ANALGESIA
     Dosage: 3 GRAM, QD
     Route: 042
     Dates: start: 20181122
  5. METAMIZOL                          /06276701/ [Concomitant]
     Active Substance: METAMIZOLE
     Indication: POSTOPERATIVE ANALGESIA
     Dosage: 6 GRAM, QD
     Route: 042
     Dates: start: 20181122

REACTIONS (2)
  - Hallucination [Recovered/Resolved]
  - Drug interaction [Unknown]

NARRATIVE: CASE EVENT DATE: 20181123
